FAERS Safety Report 14917932 (Version 1)
Quarter: 2018Q2

REPORT INFORMATION
  Report Type: Report from Study
  Country: CA (occurrence: CA)
  Receive Date: 20180521
  Receipt Date: 20180521
  Transmission Date: 20180711
  Serious: Yes (Other)
  Sender: FDA-Public Use
  Company Number: CA-AMGEN-CANSL2018047584

PATIENT
  Age: 79 Year
  Sex: Female

DRUGS (8)
  1. EZETROL [Concomitant]
     Active Substance: EZETIMIBE
     Dosage: UNK
  2. DIAMICRON [Concomitant]
     Active Substance: GLICLAZIDE
     Dosage: UNK
  3. L THYROXINE [Concomitant]
     Active Substance: LEVOTHYROXINE SODIUM
     Dosage: UNK
  4. REPATHA [Suspect]
     Active Substance: EVOLOCUMAB
     Indication: TYPE IIA HYPERLIPIDAEMIA
     Dosage: 140 MG/ML, UNK
     Route: 065
     Dates: start: 20180315, end: 2018
  5. REPATHA [Suspect]
     Active Substance: EVOLOCUMAB
     Dosage: 140 MG/ML, UNK
     Route: 065
  6. JANUVIA [Concomitant]
     Active Substance: SITAGLIPTIN PHOSPHATE
     Indication: DIABETES MELLITUS
     Dosage: UNK
  7. METOPROLOL. [Concomitant]
     Active Substance: METOPROLOL
     Dosage: UNK
  8. DIAMINE [Concomitant]
     Indication: DIABETES MELLITUS
     Dosage: UNK

REACTIONS (8)
  - Asthenia [Unknown]
  - Tinnitus [Unknown]
  - Decreased appetite [Unknown]
  - Blood pressure decreased [Unknown]
  - Headache [Not Recovered/Not Resolved]
  - Dizziness [Unknown]
  - Nausea [Not Recovered/Not Resolved]
  - Haemoglobin increased [Unknown]

NARRATIVE: CASE EVENT DATE: 2018
